FAERS Safety Report 4533634-4 (Version None)
Quarter: 2004Q4

REPORT INFORMATION
  Report Type: 
  Country: None (occurrence: None)
  Receive Date: 20041221
  Receipt Date: 20041208
  Transmission Date: 20050328
  Serious: Yes (Other)
  Sender: FDA-Public Use
  Company Number: US-GLAXOSMITHKLINE-A0536460A

PATIENT
  Age: 77 Year
  Sex: Female

DRUGS (4)
  1. TUMS LASTING EFFECTS MINT [Suspect]
     Indication: ERUCTATION
     Dosage: 1TAB SINGLE DOSE
     Route: 048
     Dates: start: 20041207, end: 20041207
  2. PREMARIN [Concomitant]
     Route: 048
  3. LESCOL [Concomitant]
     Indication: BLOOD CHOLESTEROL INCREASED
     Route: 048
  4. ATARAX [Concomitant]
     Indication: PRURITUS
     Route: 048

REACTIONS (2)
  - BLOOD GLUCOSE INCREASED [None]
  - DIABETES MELLITUS NON-INSULIN-DEPENDENT [None]
